FAERS Safety Report 16779713 (Version 3)
Quarter: 2020Q1

REPORT INFORMATION
  Report Type: Spontaneous
  Country: NZ (occurrence: NZ)
  Receive Date: 20190906
  Receipt Date: 20200116
  Transmission Date: 20200409
  Serious: Yes (Death, Other)
  Sender: FDA-Public Use
  Company Number: NZ-MYLANLABS-2019M1083537

PATIENT
  Age: 50 Year
  Sex: Male

DRUGS (14)
  1. LANTUS [Concomitant]
     Active Substance: INSULIN GLARGINE
     Dosage: UNK, 50 UNITS MANE, 46 UNITS NOCTE
     Route: 058
     Dates: start: 20181002
  2. FLUOXETINE [Concomitant]
     Active Substance: FLUOXETINE HYDROCHLORIDE
     Dosage: 20 MILLIGRAM, AM
     Route: 048
     Dates: start: 201511
  3. METFORMIN [Concomitant]
     Active Substance: METFORMIN HYDROCHLORIDE
     Dosage: 850 MILLIGRAM, TID
     Route: 048
     Dates: start: 20181002
  4. INCRUSE ELLIPTA [Concomitant]
     Active Substance: UMECLIDINIUM BROMIDE
     Dosage: 62.5 MICROGRAM, AM
     Dates: start: 20181002
  5. CLOZARIL [Suspect]
     Active Substance: CLOZAPINE
     Indication: SCHIZOPHRENIA
     Dosage: UNK
     Route: 048
     Dates: start: 20160426
  6. AMISULPRIDE [Concomitant]
     Active Substance: AMISULPRIDE
     Dosage: 200 MILLIGRAM, PM
     Route: 048
     Dates: start: 20181002
  7. FUROSEMIDE. [Concomitant]
     Active Substance: FUROSEMIDE
     Dosage: 40 MILLIGRAM, AM
     Route: 048
     Dates: start: 20181002
  8. VALPROATE SODIUM. [Concomitant]
     Active Substance: VALPROATE SODIUM
     Dosage: 1000 MILLIGRAM, PM
     Route: 048
     Dates: start: 201511
  9. CLOZARIL [Suspect]
     Active Substance: CLOZAPINE
     Dosage: 450 MILLIGRAM, QD, 50MG MANE, 400MG NOCTE
     Route: 048
     Dates: start: 20190529
  10. ATORVASTATIN [Concomitant]
     Active Substance: ATORVASTATIN
     Dosage: 40 MILLIGRAM, PM
     Route: 048
     Dates: start: 20181002
  11. NOVORAPID [Concomitant]
     Active Substance: INSULIN ASPART
     Dosage: UNK, 10-15 UNITS TDS
     Route: 058
     Dates: start: 20181002
  12. LACTULOSE. [Concomitant]
     Active Substance: LACTULOSE
     Indication: CONSTIPATION
     Dosage: 20 MILLILITER, BID
     Route: 048
     Dates: start: 201511
  13. MOVICOL [Concomitant]
     Active Substance: POLYETHYLENE GLYCOL 3350\POTASSIUM CHLORIDE\SODIUM BICARBONATE\SODIUM CHLORIDE
     Dosage: 1 SACHET, BID
     Route: 048
     Dates: start: 20181002
  14. QUINAPRIL. [Concomitant]
     Active Substance: QUINAPRIL
     Dosage: 5 MILLIGRAM, AM
     Route: 048
     Dates: start: 20181002

REACTIONS (6)
  - Schizophrenia [Unknown]
  - Diabetes mellitus [Unknown]
  - Death [Fatal]
  - Obesity [Unknown]
  - Constipation [Unknown]
  - Antipsychotic drug level decreased [Unknown]

NARRATIVE: CASE EVENT DATE: 20190827
